FAERS Safety Report 26026469 (Version 4)
Quarter: 2025Q4

REPORT INFORMATION
  Report Type: Spontaneous
  Country: US (occurrence: US)
  Receive Date: 20251111
  Receipt Date: 20251218
  Transmission Date: 20260118
  Serious: No
  Sender: PFIZER
  Company Number: US-PFIZER INC-202500218342

PATIENT
  Age: 14 Year
  Sex: Female
  Weight: 56.6 kg

DRUGS (4)
  1. GENOTROPIN [Suspect]
     Active Substance: SOMATROPIN
     Indication: Hypopituitarism
     Dosage: INJECT 2.4 MG INTO THE SKIN NIGHTLY
     Route: 058
     Dates: start: 20250519, end: 20250730
  2. GENOTROPIN [Suspect]
     Active Substance: SOMATROPIN
     Indication: Growth hormone deficiency
     Dosage: DAILY DOSE 2.4 MG/DAY 7 DAYS/WEEK  (QHS (0.29 MG/KG/WK))
     Route: 058
     Dates: start: 2025
  3. GENOTROPIN [Suspect]
     Active Substance: SOMATROPIN
     Indication: Short stature
  4. GENOTROPIN [Suspect]
     Active Substance: SOMATROPIN
     Indication: Endocrine disorder

REACTIONS (2)
  - Drug dose omission by device [Unknown]
  - Device power source issue [Unknown]

NARRATIVE: CASE EVENT DATE: 20250101
